FAERS Safety Report 13689952 (Version 1)
Quarter: 2017Q2

REPORT INFORMATION
  Report Type: Spontaneous
  Country: FR (occurrence: FR)
  Receive Date: 20170626
  Receipt Date: 20170626
  Transmission Date: 20170830
  Serious: Yes (Death)
  Sender: FDA-Public Use
  Company Number: FR-ELI_LILLY_AND_COMPANY-FR201706008839

PATIENT
  Age: 84 Year
  Sex: Female

DRUGS (9)
  1. KARDEGIC [Concomitant]
     Active Substance: ASPIRIN LYSINE
  2. ALDACTONE [Concomitant]
     Active Substance: SPIRONOLACTONE
  3. CORDARONE [Concomitant]
     Active Substance: AMIODARONE HYDROCHLORIDE
  4. CORTANCYL [Concomitant]
     Active Substance: PREDNISONE
  5. VITAMIN D3 [Concomitant]
     Active Substance: CHOLECALCIFEROL
  6. ASPEGIC [Concomitant]
     Active Substance: ASPIRIN DL-LYSINE
  7. LASILIX                            /00032601/ [Concomitant]
     Active Substance: FUROSEMIDE
  8. FORSTEO 250UG/ML [Suspect]
     Active Substance: TERIPARATIDE
     Indication: OSTEOPOROSIS
     Dosage: UNK UNK, UNKNOWN
     Route: 058
     Dates: start: 201704
  9. FORTRANS                           /01064301/ [Concomitant]
     Active Substance: POLYETHYLENE GLYCOL 4000 \POTASSIUM CHLORIDE\SODIUM BICARBONATE\SODIUM CHLORIDE\SODIUM SULFATE ANHYDROUS

REACTIONS (3)
  - Coma [Fatal]
  - Cerebrovascular accident [Fatal]
  - Arrhythmia [Fatal]
